FAERS Safety Report 8611501-4 (Version None)
Quarter: 2012Q3

REPORT INFORMATION
  Report Type: 
  Country: None (occurrence: None)
  Receive Date: 20120822
  Receipt Date: 20120813
  Transmission Date: 20120928
  Serious: Yes (Hospitalization)
  Sender: FDA-Public Use
  Company Number: FR-ASTRAZENECA-2012SE57974

PATIENT
  Age: 27314 Day
  Sex: Female

DRUGS (16)
  1. ACETAMINOPHEN [Suspect]
     Indication: PAIN
     Route: 042
     Dates: start: 20120605, end: 20120608
  2. TRANSPIPEG [Concomitant]
  3. AMLODIPINE [Suspect]
     Route: 048
     Dates: start: 20120602
  4. ZYMAD [Suspect]
     Indication: VITAMIN D DEFICIENCY
     Route: 048
     Dates: start: 20120606, end: 20120607
  5. ASPIRIN [Concomitant]
  6. CRESTOR [Suspect]
     Indication: DYSLIPIDAEMIA
     Route: 048
     Dates: start: 20120101, end: 20120608
  7. POTASSIUM CHLORIDE [Suspect]
     Indication: HYPOKALAEMIA
     Route: 048
     Dates: start: 20120530
  8. METRONIDAZOLE [Suspect]
     Indication: ANTIBIOTIC THERAPY
     Route: 042
     Dates: start: 20120608, end: 20120609
  9. ARIXTRA [Suspect]
     Indication: THROMBOSIS PROPHYLAXIS
     Route: 058
     Dates: start: 20120501
  10. VENLAFAXINE [Suspect]
     Indication: DEPRESSION
     Route: 048
     Dates: end: 20120612
  11. LASIX [Suspect]
     Indication: CARDIAC FAILURE
     Route: 048
     Dates: start: 20120530, end: 20120605
  12. CEFTRIAXON [Suspect]
     Indication: ANTIBIOTIC THERAPY
     Route: 042
     Dates: start: 20120605, end: 20120609
  13. DIGOXIN [Suspect]
     Indication: CARDIAC FAILURE
     Route: 048
     Dates: start: 20120601
  14. FERROUS SULFATE TAB [Concomitant]
  15. RISPERDAL [Suspect]
     Indication: DEPRESSION
     Route: 048
     Dates: start: 20120501, end: 20120613
  16. BISOPROLOL FUMARATE [Suspect]
     Indication: CARDIAC FAILURE
     Route: 048
     Dates: start: 20120607, end: 20120608

REACTIONS (4)
  - CYTOLYTIC HEPATITIS [None]
  - DYSPNOEA [None]
  - PALPITATIONS [None]
  - DEPRESSION [None]
